FAERS Safety Report 15684270 (Version 1)
Quarter: 2018Q4

REPORT INFORMATION
  Report Type: Spontaneous
  Country: US (occurrence: US)
  Receive Date: 20181121
  Receipt Date: 20181121
  Transmission Date: 20190205
  Serious: No
  Sender: FDA-Public Use
  Company Number: None

PATIENT
  Age: 44 Year

DRUGS (1)
  1. INLYTA [Suspect]
     Active Substance: AXITINIB
     Indication: RENAL CANCER
     Dates: start: 20181116, end: 20181117

REACTIONS (2)
  - Therapy cessation [None]
  - Hepatic enzyme increased [None]

NARRATIVE: CASE EVENT DATE: 20181116
